FAERS Safety Report 14045911 (Version 1)
Quarter: 2017Q4

REPORT INFORMATION
  Report Type: Spontaneous
  Country: US (occurrence: US)
  Receive Date: 20171005
  Receipt Date: 20171005
  Transmission Date: 20180321
  Serious: No
  Sender: FDA-Public Use
  Company Number: US-PFIZER INC-2017426598

PATIENT
  Sex: Female

DRUGS (3)
  1. ADVIL [Suspect]
     Active Substance: IBUPROFEN
     Indication: PAIN
     Dosage: UNK
  2. TURMERIC /01079602/ [Concomitant]
     Active Substance: HERBALS\TURMERIC
     Indication: PAIN
     Dosage: UNK
  3. NABUMETONE. [Concomitant]
     Active Substance: NABUMETONE
     Indication: PAIN
     Dosage: UNK

REACTIONS (1)
  - Drug ineffective [Unknown]
